FAERS Safety Report 8983186 (Version 1)
Quarter: 2012Q4

REPORT INFORMATION
  Report Type: 
  Country: TN (occurrence: TN)
  Receive Date: 20121224
  Receipt Date: 20121224
  Transmission Date: 20130627
  Serious: Yes (Death)
  Sender: FDA-Public Use
  Company Number: PHHY2012TN119030

PATIENT
  Age: 5 Year
  Sex: Female

DRUGS (3)
  1. NILOTINIB [Suspect]
     Indication: ACUTE MYELOID LEUKAEMIA
     Dosage: 300 mg, BID
     Route: 048
  2. CYTOSINE ARABINOSIDE [Concomitant]
     Indication: ACUTE MYELOID LEUKAEMIA
  3. MITOXANTRONE HYDROCHLORIDE [Concomitant]
     Indication: ACUTE MYELOID LEUKAEMIA

REACTIONS (2)
  - Cerebral haemorrhage [Fatal]
  - Drug ineffective [Unknown]
